FAERS Safety Report 11855347 (Version 1)
Quarter: 2015Q4

REPORT INFORMATION
  Report Type: Spontaneous
  Country: US (occurrence: US)
  Receive Date: 20151221
  Receipt Date: 20151221
  Transmission Date: 20160305
  Serious: Yes (Other)
  Sender: FDA-Public Use
  Company Number: US-ASTELLAS-2015US047511

PATIENT
  Age: 27 Year
  Sex: Male

DRUGS (1)
  1. AMBISOME [Suspect]
     Active Substance: AMPHOTERICIN B
     Indication: PYELONEPHRITIS FUNGAL
     Dosage: UNK, UNKNOWN FREQ.
     Route: 065

REACTIONS (1)
  - Chronic kidney disease [Unknown]
